FAERS Safety Report 8180270-7 (Version None)
Quarter: 2012Q1

REPORT INFORMATION
  Report Type: 
  Country: None (occurrence: None)
  Receive Date: 20120302
  Receipt Date: 20111007
  Transmission Date: 20120608
  Serious: No
  Sender: FDA-Public Use
  Company Number: US-GLAXOSMITHKLINE-A0948249A

PATIENT
  Age: 73 Year
  Sex: Male

DRUGS (2)
  1. CLOBETASOL PROPIONATE [Suspect]
     Indication: PRODUCT USED FOR UNKNOWN INDICATION
     Route: 061
     Dates: start: 20111006, end: 20111007
  2. NO CONCURRENT MEDICATION [Concomitant]

REACTIONS (1)
  - DERMATITIS ACNEIFORM [None]
